FAERS Safety Report 15977271 (Version 2)
Quarter: 2019Q1

REPORT INFORMATION
  Report Type: Spontaneous
  Country: US (occurrence: US)
  Receive Date: 20190218
  Receipt Date: 20190321
  Transmission Date: 20190418
  Serious: Yes (Other)
  Sender: FDA-Public Use
  Company Number: PHEH2019US006796

PATIENT
  Age: 76 Year
  Sex: Female

DRUGS (1)
  1. AFINITOR [Suspect]
     Active Substance: EVEROLIMUS
     Indication: BREAST CANCER
     Dosage: 5 MG, QD
     Route: 048

REACTIONS (2)
  - Malignant neoplasm progression [Recovering/Resolving]
  - Breast cancer [Recovering/Resolving]

NARRATIVE: CASE EVENT DATE: 201811
